FAERS Safety Report 9621549 (Version 1)
Quarter: 2013Q4

REPORT INFORMATION
  Report Type: Spontaneous
  Country: US (occurrence: None)
  Receive Date: 20131011
  Receipt Date: 20131011
  Transmission Date: 20140711
  Serious: Yes (Hospitalization)
  Sender: FDA-Public Use
  Company Number: None

PATIENT
  Age: 62 Year
  Sex: Female
  Weight: 69.1 kg

DRUGS (1)
  1. EVEROLIMUS [Suspect]
     Indication: IMMUNOSUPPRESSION
     Route: 048
     Dates: start: 20130815

REACTIONS (4)
  - Toxicity to various agents [None]
  - Pyrexia [None]
  - Chills [None]
  - Urine output decreased [None]
